FAERS Safety Report 8144869-6 (Version None)
Quarter: 2012Q1

REPORT INFORMATION
  Report Type: 
  Country: None (occurrence: None)
  Receive Date: 20120217
  Receipt Date: 20120213
  Transmission Date: 20120608
  Serious: Yes (Hospitalization, Disabling)
  Sender: FDA-Public Use
  Company Number: FR-GLAXOSMITHKLINE-B0396378A

PATIENT
  Sex: Male
  Weight: 65.6 kg

DRUGS (5)
  1. LAMICTAL [Suspect]
     Indication: EPILEPSY
     Route: 048
     Dates: start: 20050506, end: 20050711
  2. URBANYL [Concomitant]
     Route: 065
     Dates: start: 20050501
  3. KETOPROFEN [Concomitant]
     Indication: PRODUCT USED FOR UNKNOWN INDICATION
     Dosage: 150MG TWICE PER DAY
     Route: 065
     Dates: start: 20050520
  4. ANTIBIOTICS [Concomitant]
     Route: 065
     Dates: end: 20050429
  5. OMEPRAZOLE [Concomitant]
     Indication: PRODUCT USED FOR UNKNOWN INDICATION
     Dosage: 20MG PER DAY
     Route: 065
     Dates: start: 20050520

REACTIONS (1)
  - STEVENS-JOHNSON SYNDROME [None]
